FAERS Safety Report 7723368-7 (Version None)
Quarter: 2011Q3

REPORT INFORMATION
  Report Type: 
  Country: None (occurrence: None)
  Receive Date: 20110826
  Receipt Date: 20110813
  Transmission Date: 20111222
  Serious: Yes (Hospitalization)
  Sender: FDA-Public Use
  Company Number: 1000023057

PATIENT
  Age: 73 Year
  Sex: Female

DRUGS (2)
  1. ESCITALOPRAM OXALATE [Suspect]
     Indication: BEHAVIOURAL AND PSYCHIATRIC SYMPTOMS OF DEMENTIA
     Dosage: 10 MG (10 MG,1 IN 1 D)
  2. ESCITALOPRAM OXALATE [Suspect]
     Indication: BEHAVIOURAL AND PSYCHIATRIC SYMPTOMS OF DEMENTIA
     Dosage: 10 MG (10 MG,1 IN 1 D)

REACTIONS (8)
  - ALTERED STATE OF CONSCIOUSNESS [None]
  - ESCHERICHIA INFECTION [None]
  - CULTURE URINE POSITIVE [None]
  - CEREBRAL SMALL VESSEL ISCHAEMIC DISEASE [None]
  - CEREBRAL ATROPHY [None]
  - HYPONATRAEMIA [None]
  - ELECTROENCEPHALOGRAM ABNORMAL [None]
  - DELIRIUM [None]
